FAERS Safety Report 17654786 (Version 1)
Quarter: 2020Q2

REPORT INFORMATION
  Report Type: Spontaneous
  Country: AU (occurrence: AU)
  Receive Date: 20200410
  Receipt Date: 20200410
  Transmission Date: 20200713
  Serious: Yes (Other)
  Sender: FDA-Public Use
  Company Number: AU-JNJFOC-20200404053

PATIENT

DRUGS (7)
  1. MEZAVANT [Concomitant]
     Active Substance: MESALAMINE
  2. IRON [Concomitant]
     Active Substance: IRON
     Route: 065
  3. GLUCOSAMINE SULPHATE [Concomitant]
     Active Substance: GLUCOSAMINE
     Route: 065
  4. BUDENOFALK [Concomitant]
     Active Substance: BUDESONIDE
  5. GASTROSTOP [Concomitant]
     Route: 065
  6. SIMPONI [Suspect]
     Active Substance: GOLIMUMAB
     Indication: COLITIS ULCERATIVE
     Route: 058
  7. IMURAN [Concomitant]
     Active Substance: AZATHIOPRINE

REACTIONS (3)
  - Colon dysplasia [Unknown]
  - Drug ineffective [Unknown]
  - Proctitis [Unknown]
